FAERS Safety Report 7871099-5 (Version None)
Quarter: 2011Q4

REPORT INFORMATION
  Report Type: 
  Country: None (occurrence: None)
  Receive Date: 20111029
  Receipt Date: 20110224
  Transmission Date: 20120403
  Serious: No
  Sender: FDA-Public Use
  Company Number: US-AMGEN-USASP2011010868

PATIENT
  Sex: Female

DRUGS (6)
  1. ENBREL [Suspect]
     Indication: PRODUCT USED FOR UNKNOWN INDICATION
     Dosage: 50 MG, QWK
     Route: 058
  2. NEXIUM [Concomitant]
  3. PROZAC [Concomitant]
     Dosage: 10 MG, UNK
  4. VICODIN [Concomitant]
     Dosage: 500 MG, UNK
  5. SYNTHROID [Concomitant]
     Dosage: 112 UNK, UNK
  6. BIOTIN [Concomitant]

REACTIONS (1)
  - INJECTION SITE URTICARIA [None]
